APPROVED DRUG PRODUCT: CEFUROXIME AXETIL
Active Ingredient: CEFUROXIME AXETIL
Strength: EQ 250MG BASE
Dosage Form/Route: TABLET;ORAL
Application: A065126 | Product #001
Applicant: FOSUN PHARMA USA INC
Approved: Oct 28, 2003 | RLD: No | RS: No | Type: DISCN